FAERS Safety Report 24741812 (Version 1)
Quarter: 2024Q4

REPORT INFORMATION
  Report Type: Spontaneous
  Country: US (occurrence: US)
  Receive Date: 20241217
  Receipt Date: 20241217
  Transmission Date: 20250115
  Serious: No
  Sender: RANBAXY
  Company Number: US-SUN PHARMACEUTICAL INDUSTRIES LTD-2024R1-469256

PATIENT
  Sex: Male

DRUGS (1)
  1. CIPROFLOXACIN\DEXAMETHASONE [Suspect]
     Active Substance: CIPROFLOXACIN\DEXAMETHASONE
     Indication: Ear infection
     Dosage: UNK UNK, BID
     Route: 001

REACTIONS (1)
  - Product use issue [Unknown]
